FAERS Safety Report 8515191-0 (Version None)
Quarter: 2012Q3

REPORT INFORMATION
  Report Type: 
  Country: None (occurrence: None)
  Receive Date: 20120717
  Receipt Date: 20120709
  Transmission Date: 20120928
  Serious: Yes (Other)
  Sender: FDA-Public Use
  Company Number: JP-GLAXOSMITHKLINE-B0811363A

PATIENT
  Age: 90 Year
  Sex: Male

DRUGS (5)
  1. CERNILTON [Concomitant]
     Route: 048
  2. DUTASTERIDE [Suspect]
     Indication: BENIGN PROSTATIC HYPERPLASIA
     Dosage: .5MG PER DAY
     Route: 048
     Dates: start: 20120528
  3. LEVOTHYROXINE SODIUM [Concomitant]
     Route: 048
  4. MAGNESIUM OXIDE [Concomitant]
     Route: 048
  5. ALLOPURINOL [Concomitant]
     Route: 048

REACTIONS (3)
  - INCONTINENCE [None]
  - HALLUCINATION [None]
  - HALLUCINATION, AUDITORY [None]
